FAERS Safety Report 7290656-0 (Version None)
Quarter: 2011Q1

REPORT INFORMATION
  Report Type: 
  Country: None (occurrence: None)
  Receive Date: 20110210
  Receipt Date: 20110210
  Transmission Date: 20110831
  Serious: Yes (Life-Threatening, Hospitalization)
  Sender: FDA-Public Use
  Company Number: None

PATIENT
  Age: 75 Year
  Sex: Male
  Weight: 68.0396 kg

DRUGS (1)
  1. SEROQUEL [Suspect]
     Indication: DEMENTIA ALZHEIMER'S TYPE
     Dosage: 4 X DAY PO
     Route: 048
     Dates: start: 20110119, end: 20110125

REACTIONS (3)
  - DIABETES MELLITUS [None]
  - HEART RATE INCREASED [None]
  - PNEUMONIA [None]
